FAERS Safety Report 25461959 (Version 2)
Quarter: 2025Q4

REPORT INFORMATION
  Report Type: Report from Study
  Country: BR (occurrence: BR)
  Receive Date: 20250620
  Receipt Date: 20251204
  Transmission Date: 20260118
  Serious: Yes (Hospitalization)
  Sender: JOHNSON AND JOHNSON
  Company Number: BR-JNJFOC-20250619550

PATIENT
  Age: 60 Year
  Sex: Male
  Weight: 112 kg

DRUGS (1)
  1. INFLIXIMAB [Suspect]
     Active Substance: INFLIXIMAB
     Indication: Crohn^s disease
     Dosage: CURRENTLY HAD THE PATIENT LAST INFUSION:11-JUN-2025
     Route: 041

REACTIONS (6)
  - Pneumonia [Unknown]
  - Chikungunya virus infection [Unknown]
  - COVID-19 [Unknown]
  - Dengue fever [Unknown]
  - Illness [Recovering/Resolving]
  - Off label use [Unknown]

NARRATIVE: CASE EVENT DATE: 20240101
